FAERS Safety Report 7708037-1 (Version None)
Quarter: 2011Q3

REPORT INFORMATION
  Report Type: 
  Country: None (occurrence: None)
  Receive Date: 20110824
  Receipt Date: 20110811
  Transmission Date: 20111222
  Serious: Yes (Death, Congenital Anomaly)
  Sender: FDA-Public Use
  Company Number: US-MYLANLABS-2011S1017060

PATIENT
  Sex: Male

DRUGS (2)
  1. MISOPROSTOL [Suspect]
     Indication: ABORTION INDUCED
     Dosage: 8 TABLETS OF MISOPROSTOL 200 MICROG
     Route: 067
  2. METHOTREXATE [Suspect]
     Indication: ABORTION INDUCED
     Route: 030

REACTIONS (5)
  - BRONCHOPULMONARY DYSPLASIA [None]
  - TERATOGENICITY [None]
  - BRONCHOPNEUMONIA [None]
  - PULMONARY HYPERTENSION [None]
  - FOETAL GROWTH RESTRICTION [None]
